FAERS Safety Report 8431473-5 (Version None)
Quarter: 2012Q2

REPORT INFORMATION
  Report Type: 
  Country: None (occurrence: None)
  Receive Date: 20120613
  Receipt Date: 20120604
  Transmission Date: 20120825
  Serious: Yes (Hospitalization)
  Sender: FDA-Public Use
  Company Number: US-BAYER-2012-026926

PATIENT
  Age: 21 Year
  Sex: Female
  Weight: 68.027 kg

DRUGS (10)
  1. YASMIN [Suspect]
     Indication: CONTRACEPTION
     Dosage: UNK
     Dates: start: 20070101, end: 20090101
  2. DROSPIRENONE AND ETHINYL ESTRADIOL [Suspect]
     Indication: CONTRACEPTION
     Dosage: UNK
     Dates: start: 20070101, end: 20090101
  3. CYCLOBENZAPRINE [Concomitant]
     Dosage: 10 MG, UNK
  4. IBUPROFEN [Concomitant]
     Dosage: 600 MG, UNK
  5. FLEXERIL [Concomitant]
  6. LEVAQUIN [Concomitant]
  7. TRAMADOL HCL [Concomitant]
     Dosage: 50 MG, UNK
  8. CLINDAMYCIN [Concomitant]
     Dosage: 300 MG, UNK
  9. HYDROCODONE BITARTRATE AND IBUPROFEN [Concomitant]
  10. VICODIN [Concomitant]

REACTIONS (4)
  - CHOLECYSTITIS CHRONIC [None]
  - PAIN [None]
  - INJURY [None]
  - CHOLECYSTECTOMY [None]
